FAERS Safety Report 24800851 (Version 1)
Quarter: 2025Q1

REPORT INFORMATION
  Report Type: Spontaneous
  Country: US (occurrence: US)
  Receive Date: 20250102
  Receipt Date: 20250102
  Transmission Date: 20250409
  Serious: Yes (Death)
  Sender: PFIZER
  Company Number: US-PFIZER INC-202400335889

PATIENT
  Age: 47 Year
  Sex: Female
  Weight: 38.1 kg

DRUGS (1)
  1. TUKYSA [Suspect]
     Active Substance: TUCATINIB
     Indication: Breast cancer female

REACTIONS (1)
  - Death [Fatal]

NARRATIVE: CASE EVENT DATE: 20241218
